FAERS Safety Report 8348859-X (Version None)
Quarter: 2012Q2

REPORT INFORMATION
  Report Type: 
  Country: None (occurrence: None)
  Receive Date: 20120508
  Receipt Date: 20120423
  Transmission Date: 20120825
  Serious: Yes (Death, Life-Threatening, Other)
  Sender: FDA-Public Use
  Company Number: JPI-P-008939

PATIENT
  Sex: Female

DRUGS (3)
  1. UNSPECIFIED BENZODIAZEPINE [Concomitant]
  2. ALPRAZOLAM [Suspect]
     Indication: PRODUCT USED FOR UNKNOWN INDICATION
  3. XYREM [Suspect]
     Indication: PRODUCT USED FOR UNKNOWN INDICATION
     Dosage: ORAL
     Route: 048

REACTIONS (3)
  - COMA [None]
  - OVERDOSE [None]
  - DRUG INTERACTION [None]
